FAERS Safety Report 7159261-0 (Version None)
Quarter: 2010Q4

REPORT INFORMATION
  Report Type: 
  Country: None (occurrence: None)
  Receive Date: 20101214
  Receipt Date: 20100803
  Transmission Date: 20110411
  Serious: No
  Sender: FDA-Public Use
  Company Number: US-ASTRAZENECA-2010SE36604

PATIENT
  Sex: Male

DRUGS (11)
  1. CRESTOR [Suspect]
     Route: 048
  2. NEXIUM [Concomitant]
  3. LIPITOR [Concomitant]
  4. FLEXERIL [Concomitant]
  5. ULTRAM [Concomitant]
  6. ELAVIL [Concomitant]
  7. NASACORT AQ [Concomitant]
  8. ALLEGRA [Concomitant]
  9. EPIPEN [Concomitant]
  10. BENADRYL [Concomitant]
  11. IBU [Concomitant]

REACTIONS (1)
  - ANAPHYLACTIC REACTION [None]
